FAERS Safety Report 19877242 (Version 1)
Quarter: 2021Q3

REPORT INFORMATION
  Report Type: Spontaneous
  Country: US (occurrence: US)
  Receive Date: 20210923
  Receipt Date: 20210923
  Transmission Date: 20211014
  Serious: No
  Sender: FDA-Public Use
  Company Number: US-CELGENEUS-USA-20210903997

PATIENT
  Age: 71 Year
  Sex: Male

DRUGS (1)
  1. POMALYST [Suspect]
     Active Substance: POMALIDOMIDE
     Indication: AMYLOIDOSIS
     Dosage: 1 MILLIGRAM
     Route: 048
     Dates: start: 202106

REACTIONS (2)
  - Fatigue [Unknown]
  - Constipation [Unknown]

NARRATIVE: CASE EVENT DATE: 20210914
